FAERS Safety Report 10905711 (Version 2)
Quarter: 2015Q1

REPORT INFORMATION
  Report Type: Spontaneous
  Country: RU (occurrence: RU)
  Receive Date: 20150311
  Receipt Date: 20150312
  Transmission Date: 20150721
  Serious: Yes (Other)
  Sender: FDA-Public Use
  Company Number: ALCN2015RU001545

PATIENT
  Age: 63 Year
  Sex: Female

DRUGS (7)
  1. NEVANAC [Suspect]
     Active Substance: NEPAFENAC
     Indication: POSTOPERATIVE CARE
     Dosage: 1 DF, TID
     Route: 047
  2. DEXAMETHASONE. [Suspect]
     Active Substance: DEXAMETHASONE
     Indication: EYE OPERATION
     Dosage: UNK
     Route: 057
  3. 5-FLUOROURACIL [Suspect]
     Active Substance: FLUOROURACIL
     Indication: EYE OPERATION
     Dosage: 1 DF, ONCE/SINGLE
     Route: 057
  4. RANIBIZUMAB [Suspect]
     Active Substance: RANIBIZUMAB
     Indication: OFF LABEL USE
  5. TOBRADEX [Suspect]
     Active Substance: DEXAMETHASONE\TOBRAMYCIN
     Indication: POSTOPERATIVE CARE
     Dosage: 1 DF, TID
     Route: 047
  6. 5-FLUOROURACIL [Suspect]
     Active Substance: FLUOROURACIL
     Indication: OFF LABEL USE
  7. RANIBIZUMAB [Suspect]
     Active Substance: RANIBIZUMAB
     Indication: EYE OPERATION
     Dosage: 1 DF, ONCE/SINGLE
     Route: 057

REACTIONS (9)
  - Off label use [Unknown]
  - Corneal decompensation [Unknown]
  - Corneal disorder [Recovered/Resolved]
  - Visual acuity reduced [Unknown]
  - Vision blurred [Unknown]
  - Foreign body sensation in eyes [Unknown]
  - Corneal oedema [Recovered/Resolved]
  - Choroidal effusion [Recovered/Resolved]
  - Ocular hypertension [Recovered/Resolved]
